FAERS Safety Report 8575150-9 (Version None)
Quarter: 2012Q2

REPORT INFORMATION
  Report Type: 
  Country: None (occurrence: None)
  Receive Date: 20120423
  Receipt Date: 20090730
  Transmission Date: 20120825
  Serious: Yes (Other)
  Sender: FDA-Public Use
  Company Number: PHEH2009US08492

PATIENT
  Sex: Female

DRUGS (2)
  1. EXJADE [Suspect]
     Indication: IRON OVERLOAD
     Dosage: 500 MG/DAY, ORAL
     Route: 048
  2. EXJADE [Suspect]
     Indication: HAEMATOLOGICAL MALIGNANCY
     Dosage: 500 MG/DAY, ORAL
     Route: 048

REACTIONS (1)
  - NEOPLASM MALIGNANT [None]
